FAERS Safety Report 9976049 (Version 1)
Quarter: 2014Q1

REPORT INFORMATION
  Report Type: Spontaneous
  Country: US (occurrence: US)
  Receive Date: 20140306
  Receipt Date: 20140306
  Transmission Date: 20141002
  Serious: Yes (Hospitalization, Other)
  Sender: FDA-Public Use
  Company Number: PHHY2014US024384

PATIENT
  Age: 56 Year
  Sex: Male

DRUGS (3)
  1. METFORMIN [Suspect]
     Indication: TYPE 2 DIABETES MELLITUS
     Dosage: 500 MG, BID
  2. LISINOPRIL [Concomitant]
  3. DIURETICS [Concomitant]

REACTIONS (7)
  - Renal failure acute [Unknown]
  - Respiratory failure [Unknown]
  - Renal impairment [Unknown]
  - Lactic acidosis [Unknown]
  - Metabolic acidosis [Unknown]
  - Mental status changes [Unknown]
  - Drug level increased [Unknown]
